FAERS Safety Report 9906750 (Version 2)
Quarter: 2014Q1

REPORT INFORMATION
  Report Type: Spontaneous
  Country: TR (occurrence: TR)
  Receive Date: 20140218
  Receipt Date: 20140303
  Transmission Date: 20141002
  Serious: No
  Sender: FDA-Public Use
  Company Number: TR-ELI_LILLY_AND_COMPANY-TR201402004876

PATIENT
  Sex: Male
  Weight: 90 kg

DRUGS (2)
  1. CIALIS [Suspect]
     Indication: ERECTILE DYSFUNCTION
     Dosage: 20 MG, PRN
     Route: 048
  2. CIALIS [Suspect]
     Dosage: 5 MG, QD
     Route: 048
     Dates: start: 201401

REACTIONS (2)
  - Vision blurred [Not Recovered/Not Resolved]
  - Hepatic steatosis [Unknown]
